FAERS Safety Report 6645353-9 (Version None)
Quarter: 2010Q1

REPORT INFORMATION
  Report Type: 
  Country: None (occurrence: None)
  Receive Date: 20100322
  Receipt Date: 20100311
  Transmission Date: 20100710
  Serious: Yes (Other)
  Sender: FDA-Public Use
  Company Number: ES-GENENTECH-298686

PATIENT
  Sex: Female

DRUGS (7)
  1. MABTHERA [Suspect]
     Indication: B-CELL LYMPHOMA
     Dosage: 645 UNK, UNK
     Route: 042
     Dates: start: 20061101, end: 20070425
  2. MABTHERA [Suspect]
     Dosage: UNK
     Route: 042
     Dates: start: 20070101, end: 20090525
  3. FLUDARABINE PHOSPHATE [Suspect]
     Indication: DRUG USE FOR UNKNOWN INDICATION
     Route: 065
  4. CYCLOPHOSPHAMIDE [Concomitant]
     Indication: B-CELL LYMPHOMA
     Dosage: 1275 MG, 1/WEEK
     Route: 042
  5. DOXORUBICIN [Concomitant]
     Indication: B-CELL LYMPHOMA
     Dosage: 85 MG, 1/WEEK
     Route: 042
     Dates: start: 20061101, end: 20070425
  6. VINCRISTINE [Concomitant]
     Indication: B-CELL LYMPHOMA
     Dosage: 2 UNK, 1/WEEK
     Route: 042
     Dates: start: 20061101, end: 20070425
  7. PREDNISONE TAB [Concomitant]
     Indication: B-CELL LYMPHOMA
     Dosage: UNK
     Route: 042
     Dates: start: 20061101, end: 20070425

REACTIONS (1)
  - BREAST CANCER [None]
